FAERS Safety Report 8501358-4 (Version None)
Quarter: 2012Q3

REPORT INFORMATION
  Report Type: 
  Country: None (occurrence: None)
  Receive Date: 20120710
  Receipt Date: 20120702
  Transmission Date: 20120928
  Serious: Yes (Other)
  Sender: FDA-Public Use
  Company Number: US-FRI-1000036789

PATIENT
  Age: 74 Year
  Sex: Male
  Weight: 120 kg

DRUGS (2)
  1. TEFLARO [Suspect]
     Indication: STAPHYLOCOCCAL INFECTION
     Dosage: 1200 MG
     Route: 042
     Dates: start: 20120217, end: 20120330
  2. TEFLARO [Suspect]
     Indication: KNEE ARTHROPLASTY

REACTIONS (1)
  - LEUKOPENIA [None]
